FAERS Safety Report 9010969 (Version 1)
Quarter: 2013Q1

REPORT INFORMATION
  Report Type: Spontaneous
  Country: US (occurrence: US)
  Receive Date: 20130109
  Receipt Date: 20130109
  Transmission Date: 20140127
  Serious: No
  Sender: FDA-Public Use
  Company Number: US-ASTRAZENECA-2013SE00749

PATIENT
  Sex: Female

DRUGS (1)
  1. NEXIUM [Suspect]
     Route: 048

REACTIONS (12)
  - Duodenitis [Unknown]
  - Oesophagitis [Unknown]
  - Oesophageal stenosis [Unknown]
  - Oesophageal ulcer [Unknown]
  - Varices oesophageal [Unknown]
  - Gastric ulcer [Unknown]
  - Gastritis [Unknown]
  - Hernia [Unknown]
  - Polyp [Unknown]
  - Barrett^s oesophagus [Unknown]
  - Mucosal discolouration [Unknown]
  - Malaise [Unknown]
